FAERS Safety Report 7513957-7 (Version None)
Quarter: 2011Q2

REPORT INFORMATION
  Report Type: 
  Country: None (occurrence: None)
  Receive Date: 20110531
  Receipt Date: 20110523
  Transmission Date: 20111010
  Serious: Yes (Other)
  Sender: FDA-Public Use
  Company Number: US-SANOFI-AVENTIS-2011SA032900

PATIENT
  Sex: Female

DRUGS (1)
  1. AMBIEN CR [Suspect]
     Route: 048

REACTIONS (6)
  - PAIN [None]
  - SCAR [None]
  - MOBILITY DECREASED [None]
  - SOMNAMBULISM [None]
  - FALL [None]
  - MULTIPLE FRACTURES [None]
